FAERS Safety Report 8122091-7 (Version None)
Quarter: 2012Q1

REPORT INFORMATION
  Report Type: 
  Country: None (occurrence: None)
  Receive Date: 20120208
  Receipt Date: 20120201
  Transmission Date: 20120608
  Serious: Yes (Other)
  Sender: FDA-Public Use
  Company Number: US-JNJFOC-20120201795

PATIENT
  Sex: Female
  Weight: 74.39 kg

DRUGS (1)
  1. REMICADE [Suspect]
     Indication: COLITIS ULCERATIVE
     Route: 042
     Dates: start: 20110301, end: 20111219

REACTIONS (2)
  - ARTHRALGIA [None]
  - LUPUS-LIKE SYNDROME [None]
